FAERS Safety Report 16529126 (Version 2)
Quarter: 2019Q4

REPORT INFORMATION
  Report Type: Spontaneous
  Country: US (occurrence: US)
  Receive Date: 20190704
  Receipt Date: 20191002
  Transmission Date: 20200122
  Serious: No
  Sender: FDA-Public Use
  Company Number: US-GW PHARMA-201905USGW1586

PATIENT

DRUGS (7)
  1. EPIDIOLEX [Suspect]
     Active Substance: CANNABIDIOL
     Indication: LENNOX-GASTAUT SYNDROME
     Dosage: 650 MILLIGRAM, BID
     Route: 048
     Dates: start: 20190330, end: 201908
  2. FELBATOL [Concomitant]
     Active Substance: FELBAMATE
     Indication: PRODUCT USED FOR UNKNOWN INDICATION
     Dosage: 1000 MILLIGRAM, QD (600 MG IN NOON AND 400 MG AT NIGHT)
     Route: 065
  3. DEPAKOTE [Concomitant]
     Active Substance: DIVALPROEX SODIUM
     Indication: PRODUCT USED FOR UNKNOWN INDICATION
     Dosage: 500 MILLIGRAM, BID (FORMULATION: DR)
     Route: 065
  4. ONFI [Concomitant]
     Active Substance: CLOBAZAM
     Dosage: 5 MILLIGRAM, BID
     Route: 065
  5. EPIDIOLEX [Suspect]
     Active Substance: CANNABIDIOL
     Dosage: WEIGHT ADJUSTED
     Route: 048
     Dates: start: 201908
  6. ONFI [Concomitant]
     Active Substance: CLOBAZAM
     Indication: PRODUCT USED FOR UNKNOWN INDICATION
     Dosage: UNK
     Route: 065
     Dates: end: 201908
  7. ONFI [Concomitant]
     Active Substance: CLOBAZAM
     Dosage: 15 MILLIGRAM, QD (5MG AM AND 10MG IN THE EVENING)
     Route: 065
     Dates: start: 201908

REACTIONS (4)
  - Faeces soft [Recovered/Resolved]
  - Weight decreased [Recovered/Resolved]
  - Clumsiness [Unknown]
  - Diarrhoea [Recovered/Resolved]

NARRATIVE: CASE EVENT DATE: 201904
